FAERS Safety Report 7431139-4 (Version None)
Quarter: 2011Q2

REPORT INFORMATION
  Report Type: 
  Country: None (occurrence: None)
  Receive Date: 20110421
  Receipt Date: 20110412
  Transmission Date: 20111010
  Serious: Yes (Hospitalization, Other)
  Sender: FDA-Public Use
  Company Number: UA-ABBOTT-11P-269-0718520-00

PATIENT
  Age: 69 Year
  Sex: Male
  Weight: 70 kg

DRUGS (2)
  1. INFUSION OF THE LIQUIDS [Concomitant]
     Indication: OPERATIVE HAEMORRHAGE
     Route: 042
     Dates: start: 20110406, end: 20110406
  2. SEVOFLURANE [Suspect]
     Indication: INHALATION THERAPY
     Route: 055
     Dates: start: 20110406, end: 20110406

REACTIONS (1)
  - OPERATIVE HAEMORRHAGE [None]
